FAERS Safety Report 5292555-2 (Version None)
Quarter: 2007Q2

REPORT INFORMATION
  Report Type: 
  Country: None (occurrence: None)
  Receive Date: 20070404
  Receipt Date: 20070323
  Transmission Date: 20071010
  Serious: Yes (Death, Life-Threatening)
  Sender: FDA-Public Use
  Company Number: 2007-00672

PATIENT
  Age: 73 Year
  Sex: Female
  Weight: 52 kg

DRUGS (4)
  1. VELCADE [Suspect]
     Indication: MULTIPLE MYELOMA
     Dosage: 1.30 MG/M2, UNK, INTRAVENOUS
     Route: 042
     Dates: start: 20060724, end: 20061214
  2. GATIFLOXACIN [Concomitant]
  3. PAMIDRONATE DISODIUM [Concomitant]
  4. MEFENAMIC ACID [Concomitant]

REACTIONS (5)
  - ACUTE MYOCARDIAL INFARCTION [None]
  - CONDITION AGGRAVATED [None]
  - HYPERTENSION [None]
  - MULTIPLE MYELOMA [None]
  - THROMBOCYTOPENIA [None]
